FAERS Safety Report 9580015 (Version 1)
Quarter: 2013Q3

REPORT INFORMATION
  Report Type: Spontaneous
  Country: US (occurrence: None)
  Receive Date: 20130916
  Receipt Date: 20130916
  Transmission Date: 20140515
  Serious: Yes (Hospitalization)
  Sender: FDA-Public Use
  Company Number: JPI-P-023466

PATIENT
  Age: 61 Year
  Sex: Female
  Weight: 99.79 kg

DRUGS (11)
  1. XYREM (500 MILLIGRAM/MILLILITERS, SOLUTION) (SODIUM OXYBATE) [Suspect]
     Indication: INSOMNIA
     Route: 048
     Dates: start: 20111024
  2. XYREM (500 MILLIGRAM/MILLILITERS, SOLUTION) (SODIUM OXYBATE) [Suspect]
     Indication: SLEEP DISORDER
     Route: 048
     Dates: start: 20111024
  3. ARIPIPRAZOLE [Concomitant]
  4. LEVOTHYROXINE [Concomitant]
  5. AMPHETAMINE, DEXTROAMPHETAMINE MIXED SALTS [Concomitant]
  6. BUPROPION HYDROCHLORIDE [Concomitant]
  7. LAMOTRIGIKNE [Concomitant]
  8. TOPIRAMATE [Concomitant]
  9. VERAPAMIL [Concomitant]
  10. DULOXETINE HYDROCHLORIDE [Concomitant]
  11. ESTRADIOL NORETHINDRONE [Concomitant]

REACTIONS (1)
  - Arthritis [None]
